FAERS Safety Report 26204965 (Version 1)
Quarter: 2025Q4

REPORT INFORMATION
  Report Type: Spontaneous
  Country: UA (occurrence: UA)
  Receive Date: 20251227
  Receipt Date: 20251227
  Transmission Date: 20260118
  Serious: Yes (Other)
  Sender: ROCHE
  Company Number: UA-ROCHE-10000470107

PATIENT
  Age: 48 Year

DRUGS (1)
  1. VABYSMO [Suspect]
     Active Substance: FARICIMAB-SVOA
     Indication: Central serous chorioretinopathy

REACTIONS (2)
  - Endophthalmitis [Unknown]
  - Off label use [Unknown]
